FAERS Safety Report 10455531 (Version 1)
Quarter: 2014Q3

REPORT INFORMATION
  Report Type: Spontaneous
  Country: US (occurrence: None)
  Receive Date: 20140912
  Receipt Date: 20140912
  Transmission Date: 20150326
  Serious: Yes (Life-Threatening, Other)
  Sender: FDA-Public Use
  Company Number: 2014JUB00131

PATIENT
  Age: 62 Year
  Sex: Male

DRUGS (16)
  1. IPRATROPRIUM-ALBUTEROL (IPRATROPRIUM AND ALBUTEROL [Concomitant]
  2. NITROGLYCERIN (NITROGLYCERIN) [Concomitant]
  3. ESCITALOPRAM [Suspect]
     Active Substance: ESCITALOPRAM OXALATE
  4. INSULIN (INSULIN) [Concomitant]
     Active Substance: INSULIN NOS
  5. VASOPRESSIN (VASOPRESSIN) [Concomitant]
  6. LAMOTRIGINE (LAMOTRIGINE) [Concomitant]
     Active Substance: LAMOTRIGINE
  7. MIDAZOLAM [Concomitant]
     Active Substance: MIDAZOLAM\MIDAZOLAM HYDROCHLORIDE
  8. FENTANYL (FENTANYL) [Concomitant]
     Active Substance: FENTANYL
  9. PHENYLEPHRINE (PHENYLEPHRINE) [Concomitant]
  10. METOPROLOL (METOPROLOL) [Concomitant]
     Active Substance: METOPROLOL
  11. ATORVASTATIN (ATORVASTATIN) [Concomitant]
     Active Substance: ATORVASTATIN
  12. FUROSEMIDE (FUROSEMIDE) [Concomitant]
     Active Substance: FUROSEMIDE
  13. LISINOPRIL (LISINOPRIL) [Concomitant]
     Active Substance: LISINOPRIL
  14. VECURONIUM (VECURONIUM) [Concomitant]
  15. METHYLENE BLUE. [Suspect]
     Active Substance: METHYLENE BLUE
     Indication: VASOPLEGIA SYNDROME
     Dosage: 1 MG/KG TWICE
  16. ASPIRIN (ACETYLSALICYLIC ACID) [Concomitant]
     Active Substance: ASPIRIN

REACTIONS (7)
  - Serotonin syndrome [None]
  - Drug interaction [None]
  - Unresponsive to stimuli [None]
  - Cardiac arrest [None]
  - Metabolic acidosis [None]
  - Encephalopathy [None]
  - Pulseless electrical activity [None]
